FAERS Safety Report 7818245-7 (Version None)
Quarter: 2011Q4

REPORT INFORMATION
  Report Type: 
  Country: None (occurrence: None)
  Receive Date: 20111017
  Receipt Date: 20111006
  Transmission Date: 20120403
  Serious: Yes (Other)
  Sender: FDA-Public Use
  Company Number: AU-BAXTER-2011BH032063

PATIENT

DRUGS (8)
  1. CYCLOPHOSPHAMIDE [Suspect]
     Indication: NEOPLASM
     Route: 042
  2. VINCRISTINE [Suspect]
     Indication: NEOPLASM
     Route: 042
  3. FILGRASTIM [Concomitant]
     Indication: HAEMATOPOIETIC STEM CELL MOBILISATION
     Route: 058
  4. ETOPOSIDE [Suspect]
     Indication: NEOPLASM
     Route: 042
  5. FLUCONAZOLE [Concomitant]
     Indication: ANTIFUNGAL PROPHYLAXIS
     Route: 065
  6. CYCLOPHOSPHAMIDE [Suspect]
     Route: 065
  7. COTRIM [Concomitant]
     Indication: ANTIFUNGAL PROPHYLAXIS
     Route: 065
  8. MESNA [Concomitant]
     Indication: HAEMORRHAGE PROPHYLAXIS
     Route: 065

REACTIONS (1)
  - VENOOCCLUSIVE DISEASE [None]
